FAERS Safety Report 7861408-5 (Version None)
Quarter: 2011Q4

REPORT INFORMATION
  Report Type: 
  Country: None (occurrence: None)
  Receive Date: 20111027
  Receipt Date: 20111024
  Transmission Date: 20120403
  Serious: Yes (Hospitalization, Other)
  Sender: FDA-Public Use
  Company Number: US-PFIZER INC-2011160951

PATIENT
  Sex: Male

DRUGS (4)
  1. XANAX [Concomitant]
     Indication: DEPRESSION
  2. ACETAMINOPHEN AND HYDROCODONE BITARTRATE [Concomitant]
     Indication: JOINT INJURY
     Dosage: UNK
     Dates: start: 20060101
  3. XANAX [Concomitant]
     Indication: ANXIETY
     Dosage: UNK
     Dates: start: 20060101
  4. CHANTIX [Suspect]
     Indication: SMOKING CESSATION THERAPY
     Dosage: 0.5 MG AND 1.0 MG
     Dates: start: 20071210, end: 20080901

REACTIONS (4)
  - DEPRESSION [None]
  - ANXIETY [None]
  - SUICIDE ATTEMPT [None]
  - INTENTIONAL OVERDOSE [None]
